FAERS Safety Report 6039778-2 (Version None)
Quarter: 2009Q1

REPORT INFORMATION
  Report Type: 
  Country: None (occurrence: None)
  Receive Date: 20090116
  Receipt Date: 20090108
  Transmission Date: 20090719
  Serious: Yes (Hospitalization)
  Sender: FDA-Public Use
  Company Number: US-JNJFOC-20061006234

PATIENT
  Sex: Female
  Weight: 95.26 kg

DRUGS (3)
  1. ORTHO EVRA [Suspect]
     Indication: CONTRACEPTION
     Route: 062
  2. HYDROCHLOROTHIAZIDE [Concomitant]
  3. ZITHROMAX [Concomitant]
     Indication: SINUS DISORDER

REACTIONS (2)
  - CHEST PAIN [None]
  - SYNCOPE [None]
